FAERS Safety Report 5653892-2 (Version None)
Quarter: 2008Q1

REPORT INFORMATION
  Report Type: 
  Country: None (occurrence: None)
  Receive Date: 20080306
  Receipt Date: 20080225
  Transmission Date: 20080703
  Serious: Yes (Other)
  Sender: FDA-Public Use
  Company Number: US-ELI_LILLY_AND_COMPANY-US200802005856

PATIENT
  Age: 87 Year
  Sex: Female

DRUGS (5)
  1. EVISTA [Suspect]
     Indication: OSTEOPOROSIS
     Dosage: 60 MG, DAILY (1/D)
     Dates: start: 20040902
  2. VITAMIN D [Concomitant]
  3. CENTRUM [Concomitant]
  4. ANTACID TAB [Concomitant]
  5. DILTIAZEM [Concomitant]
     Indication: VENTRICULAR TACHYCARDIA
     Dates: end: 20070201

REACTIONS (3)
  - OEDEMA PERIPHERAL [None]
  - PRESYNCOPE [None]
  - VENTRICULAR TACHYCARDIA [None]
